FAERS Safety Report 9214872 (Version 2)
Quarter: 2016Q1

REPORT INFORMATION
  Report Type: Spontaneous
  Country: CH (occurrence: CH)
  Receive Date: 20130405
  Receipt Date: 20160119
  Transmission Date: 20160526
  Serious: Yes (Other)
  Sender: FDA-Public Use
  Company Number: CH-BRISTOL-MYERS SQUIBB COMPANY-18758151

PATIENT
  Sex: Female
  Weight: 2.76 kg

DRUGS (3)
  1. ABILIFY [Suspect]
     Active Substance: ARIPIPRAZOLE
     Indication: PRODUCT USED FOR UNKNOWN INDICATION
     Dosage: 15MG:MORNING  10MG:EVENING
     Route: 064
  2. TEMESTA [Suspect]
     Active Substance: LORAZEPAM
     Indication: PRODUCT USED FOR UNKNOWN INDICATION
     Dosage: 1 MG, QD
     Route: 064
  3. NITROFURANTOIN. [Suspect]
     Active Substance: NITROFURANTOIN
     Indication: PRODUCT USED FOR UNKNOWN INDICATION
     Dosage: UNK
     Route: 064
     Dates: start: 2012

REACTIONS (2)
  - Foetal exposure during pregnancy [Unknown]
  - Foetal growth restriction [Unknown]

NARRATIVE: CASE EVENT DATE: 2012
